FAERS Safety Report 13493796 (Version 1)
Quarter: 2017Q2

REPORT INFORMATION
  Report Type: Spontaneous
  Country: US (occurrence: US)
  Receive Date: 20170427
  Receipt Date: 20170427
  Transmission Date: 20170830
  Serious: No
  Sender: FDA-Public Use
  Company Number: US-GUERBET-US-20160127

PATIENT
  Age: 84 Year
  Sex: Male
  Weight: 72.1 kg

DRUGS (1)
  1. DOTAREM [Suspect]
     Active Substance: GADOTERATE MEGLUMINE
     Indication: NUCLEAR MAGNETIC RESONANCE IMAGING
     Route: 042
     Dates: start: 20161015, end: 20161015

REACTIONS (2)
  - Pruritus [Unknown]
  - Urticaria [Unknown]

NARRATIVE: CASE EVENT DATE: 20161015
